FAERS Safety Report 14284788 (Version 1)
Quarter: 2017Q4

REPORT INFORMATION
  Report Type: Spontaneous
  Country: IT (occurrence: IT)
  Receive Date: 20171214
  Receipt Date: 20171214
  Transmission Date: 20180321
  Serious: Yes (Other)
  Sender: FDA-Public Use
  Company Number: IT-ACCORD-062184

PATIENT
  Age: 21 Year
  Sex: Female

DRUGS (5)
  1. ARIPIPRAZOLE. [Interacting]
     Active Substance: ARIPIPRAZOLE
     Indication: TOURETTE^S DISORDER
  2. PAROXETINE. [Suspect]
     Active Substance: PAROXETINE
     Indication: TOURETTE^S DISORDER
  3. SERTRALINE [Suspect]
     Active Substance: SERTRALINE HYDROCHLORIDE
     Indication: TOURETTE^S DISORDER
  4. TIAPRIDE [Suspect]
     Active Substance: TIAPRIDE
     Indication: TOURETTE^S DISORDER
  5. FLUOXETINE [Interacting]
     Active Substance: FLUOXETINE HYDROCHLORIDE
     Indication: TOURETTE^S DISORDER

REACTIONS (11)
  - Drug level increased [Recovered/Resolved]
  - Slow response to stimuli [Recovered/Resolved]
  - Confusional state [Recovered/Resolved]
  - Somnolence [Recovered/Resolved]
  - Joint hyperextension [Recovered/Resolved]
  - Oculogyric crisis [Recovered/Resolved]
  - Eye movement disorder [Recovered/Resolved]
  - Posture abnormal [Recovered/Resolved]
  - Gaze palsy [Recovered/Resolved]
  - Decreased activity [Recovered/Resolved]
  - Drug interaction [Unknown]
